FAERS Safety Report 10370789 (Version 1)
Quarter: 2014Q3

REPORT INFORMATION
  Report Type: Spontaneous
  Country: US (occurrence: US)
  Receive Date: 20140808
  Receipt Date: 20140808
  Transmission Date: 20150326
  Serious: Yes (Hospitalization, Other)
  Sender: FDA-Public Use
  Company Number: US-BANPHARM-20142927

PATIENT
  Age: 72 Year
  Sex: Male

DRUGS (7)
  1. NAPROXEN UNKNOWN PRODUCT [Suspect]
     Active Substance: NAPROXEN
     Indication: MUSCLE SPASMS
     Dosage: 220 MG DF, BID,
  2. NORVASC [Concomitant]
     Active Substance: AMLODIPINE BESYLATE
     Dosage: 10 MG, QD,
  3. DIOVAN [Concomitant]
     Active Substance: VALSARTAN
     Dosage: 320 MG, QD,
  4. ASPIRIN. [Suspect]
     Active Substance: ASPIRIN
     Indication: MUSCLE SPASMS
     Dosage: 81 MG DF, 6 QD,
  5. VISMODEGIB [Suspect]
     Active Substance: VISMODEGIB
     Dosage: 150 MG, QD,
  6. CIALIS [Concomitant]
     Active Substance: TADALAFIL
     Dosage: 10 MG
  7. NAPROXEN UNKNOWN PRODUCT [Suspect]
     Active Substance: NAPROXEN
     Indication: MUSCLE SPASMS
     Dosage: 220 MG DF, QID,

REACTIONS (5)
  - Cholestatic liver injury [Recovering/Resolving]
  - Melaena [Unknown]
  - Renal failure [Recovered/Resolved]
  - Laryngitis [Unknown]
  - Dysgeusia [Unknown]
